FAERS Safety Report 6481253-5 (Version None)
Quarter: 2009Q4

REPORT INFORMATION
  Report Type: 
  Country: None (occurrence: None)
  Receive Date: 20091208
  Receipt Date: 20091201
  Transmission Date: 20100525
  Serious: Yes (Life-Threatening, Disabling, Other)
  Sender: FDA-Public Use
  Company Number: A0816286A

PATIENT
  Age: 54 Year
  Sex: Female

DRUGS (7)
  1. FLUTICASONE PROPIONATE [Suspect]
     Dosage: 2PUFF PER DAY
     Route: 045
     Dates: start: 20091104
  2. ALLEGRA [Concomitant]
  3. SEREVENT [Concomitant]
  4. SINGULAIR [Concomitant]
  5. VENTOLIN [Concomitant]
  6. EPIPEN [Concomitant]
  7. LIPITOR [Concomitant]

REACTIONS (6)
  - ANAPHYLACTIC REACTION [None]
  - BRONCHOSPASM [None]
  - FACE OEDEMA [None]
  - LARYNGEAL OEDEMA [None]
  - TRACHEAL STENOSIS [None]
  - WHEEZING [None]
